FAERS Safety Report 17856082 (Version 2)
Quarter: 2020Q2

REPORT INFORMATION
  Report Type: Spontaneous
  Country: IT (occurrence: IT)
  Receive Date: 20200603
  Receipt Date: 20200604
  Transmission Date: 20200714
  Serious: Yes (Death)
  Sender: FDA-Public Use
  Company Number: NVSC2020IT152247

PATIENT
  Age: 55 Year
  Sex: Female
  Weight: 54 kg

DRUGS (4)
  1. FULVESTRANT. [Suspect]
     Active Substance: FULVESTRANT
     Indication: BREAST CANCER METASTATIC
     Dosage: 500 MG, CYCLIC
     Route: 030
     Dates: start: 20190924, end: 20191211
  2. TRIPTORELIN [Concomitant]
     Active Substance: TRIPTORELIN
     Indication: BREAST CANCER
     Dosage: 3.75 MG, UNKNOWN
     Route: 030
     Dates: start: 20180518, end: 20191220
  3. PALBOCICLIB [Suspect]
     Active Substance: PALBOCICLIB
     Indication: BREAST CANCER METASTATIC
     Dosage: 125 MG, CYCLIC
     Route: 048
     Dates: start: 20190924, end: 20191211
  4. EDOXABAN [Suspect]
     Active Substance: EDOXABAN TOSYLATE
     Indication: DEEP VEIN THROMBOSIS
     Dosage: 60 MG, QD
     Route: 048
     Dates: start: 20191115, end: 20191220

REACTIONS (4)
  - Venoocclusive liver disease [Fatal]
  - Hepatic failure [Fatal]
  - Cholestasis [Fatal]
  - Cell death [Fatal]

NARRATIVE: CASE EVENT DATE: 20191217
